FAERS Safety Report 5041191-1 (Version None)
Quarter: 2006Q3

REPORT INFORMATION
  Report Type: 
  Country: None (occurrence: None)
  Receive Date: 20060703
  Receipt Date: 20060628
  Transmission Date: 20061208
  Serious: Yes (Death, Congenital Anomaly)
  Sender: FDA-Public Use
  Company Number: US-GLAXOSMITHKLINE-A0610828A

PATIENT
  Sex: Female
  Weight: 0.9 kg

DRUGS (3)
  1. ZIDOVUDINE [Suspect]
  2. TRUVADA [Concomitant]
  3. VIRAMUNE [Concomitant]

REACTIONS (3)
  - CONGENITAL ANOMALY [None]
  - DRUG EXPOSURE DURING PREGNANCY [None]
  - HYDROPS FOETALIS [None]
